FAERS Safety Report 9349991 (Version 1)
Quarter: 2013Q2

REPORT INFORMATION
  Report Type: Report from Study
  Country: AR (occurrence: AR)
  Receive Date: 20130614
  Receipt Date: 20130614
  Transmission Date: 20140414
  Serious: Yes (Death)
  Sender: FDA-Public Use
  Company Number: PHHY2013AR060482

PATIENT
  Age: 54 Year
  Sex: Male

DRUGS (1)
  1. EXFORGE D [Suspect]
     Dosage: 1 DF, (320 MG VALS, 25 MG HCTZ AND 10 MG AMLO)
     Route: 048

REACTIONS (1)
  - Death [Fatal]
